FAERS Safety Report 13059819 (Version 1)
Quarter: 2016Q4

REPORT INFORMATION
  Report Type: Report from Study
  Country: US (occurrence: US)
  Receive Date: 20161223
  Receipt Date: 20161223
  Transmission Date: 20170207
  Serious: Yes (Hospitalization, Disabling, Other)
  Sender: FDA-Public Use
  Company Number: US-GILEAD-2016-0250075

PATIENT
  Age: 61 Year
  Sex: Male

DRUGS (1)
  1. EMTRICITABINE/RILPIVIRINE/TENOFOVIR DF [Suspect]
     Active Substance: EMTRICITABINE\RILPIVIRINE\TENOFOVIR DISOPROXIL FUMARATE
     Indication: HIV INFECTION
     Dosage: 525 MG, UNK
     Route: 048

REACTIONS (6)
  - Intellectual disability [Unknown]
  - Schizophrenia [Unknown]
  - Weight decreased [Unknown]
  - Cerebrovascular accident [Unknown]
  - Aphonia [Unknown]
  - Mental status changes [Unknown]
